FAERS Safety Report 9718810 (Version 2)
Quarter: 2013Q4

REPORT INFORMATION
  Report Type: Spontaneous
  Country: JP (occurrence: JP)
  Receive Date: 20131127
  Receipt Date: 20131127
  Transmission Date: 20140711
  Serious: Yes (Hospitalization)
  Sender: FDA-Public Use
  Company Number: JP-009507513-2012SP012301

PATIENT
  Age: 42 Year
  Sex: Female
  Weight: 43 kg

DRUGS (5)
  1. ORGADRONE INJECTION 3.8MG [Suspect]
     Indication: BACK PAIN
     Dosage: 3.8 MG, QD
     Route: 030
     Dates: start: 20111224, end: 20111224
  2. LOXOMARIN [Suspect]
     Indication: ANALGESIC THERAPY
     Dosage: DAILY DOSE UNKNOWN
     Route: 048
     Dates: start: 20111224, end: 20111226
  3. ROCAIN [Concomitant]
     Indication: BACK PAIN
     Dosage: 3 DF,PER DAY
     Route: 030
     Dates: start: 20111224, end: 20111224
  4. TERNELIN [Concomitant]
     Indication: MUSCLE TIGHTNESS
     Dosage: DAILY DOSE UNKNOWN
     Route: 048
     Dates: start: 20111224, end: 20111226
  5. MUCOSTA [Concomitant]
     Indication: GASTRITIS
     Dosage: DAILY DOSE UNKNOWN
     Route: 048
     Dates: start: 20111224, end: 20111226

REACTIONS (1)
  - Acute generalised exanthematous pustulosis [Recovering/Resolving]
